FAERS Safety Report 24277136 (Version 1)
Quarter: 2024Q3

REPORT INFORMATION
  Report Type: Spontaneous
  Country: RO (occurrence: RO)
  Receive Date: 20240903
  Receipt Date: 20240903
  Transmission Date: 20241016
  Serious: Yes (Hospitalization, Other)
  Sender: DR REDDYS
  Company Number: None

PATIENT
  Age: 32 Year
  Sex: Male

DRUGS (4)
  1. OMEPRAZOLE [Suspect]
     Active Substance: OMEPRAZOLE
     Indication: Gastrooesophageal reflux disease
     Dosage: 20 MG, QD
     Dates: start: 2020
  2. OMEPRAZOLE [Suspect]
     Active Substance: OMEPRAZOLE
     Indication: Gastritis
  3. DOCETAXEL [Suspect]
     Active Substance: DOCETAXEL\DOCETAXEL ANHYDROUS
     Indication: Mucoepidermoid carcinoma of salivary gland
     Dosage: 100 MILLIGRAM/SQ. METER - 6 CYCLES
     Dates: start: 2013
  4. CISPLATIN [Suspect]
     Active Substance: CISPLATIN
     Indication: Mucoepidermoid carcinoma of salivary gland
     Dosage: 40 MILLIGRAM/SQ. METER - 6 CYCLES
     Dates: start: 2013

REACTIONS (15)
  - Hepatic cytolysis [Recovering/Resolving]
  - Ventricular hypokinesia [Recovering/Resolving]
  - Abdominal pain upper [Recovering/Resolving]
  - Systolic dysfunction [Recovering/Resolving]
  - Left ventricular dilatation [Recovering/Resolving]
  - Cardiac failure congestive [Recovering/Resolving]
  - Acute myocardial infarction [Recovering/Resolving]
  - Mitral valve incompetence [Recovering/Resolving]
  - Myocardial necrosis [Recovering/Resolving]
  - Acute coronary syndrome [Recovering/Resolving]
  - Thrombolysis [Recovering/Resolving]
  - Nausea [Recovering/Resolving]
  - Arterial occlusive disease [Recovering/Resolving]
  - Vomiting [Recovering/Resolving]
  - Tricuspid valve incompetence [Recovering/Resolving]
